FAERS Safety Report 7609030-X (Version None)
Quarter: 2011Q3

REPORT INFORMATION
  Report Type: 
  Country: None (occurrence: None)
  Receive Date: 20110714
  Receipt Date: 20110713
  Transmission Date: 20111222
  Serious: Yes (Death)
  Sender: FDA-Public Use
  Company Number: MY-ROCHE-786335

PATIENT
  Sex: Male
  Weight: 56 kg

DRUGS (2)
  1. PEGASYS [Suspect]
     Indication: HEPATITIS C
     Route: 065
  2. COPEGUS [Suspect]
     Indication: HEPATITIS C
     Route: 065

REACTIONS (1)
  - DEATH [None]
